FAERS Safety Report 9745027 (Version 29)
Quarter: 2018Q4

REPORT INFORMATION
  Report Type: Report from Study
  Country: CA (occurrence: CA)
  Receive Date: 20131211
  Receipt Date: 20181204
  Transmission Date: 20190205
  Serious: Yes (Hospitalization, Other)
  Sender: FDA-Public Use
  Company Number: CA-ROCHE-681181

PATIENT
  Age: 31 Year
  Sex: Female
  Weight: 80 kg

DRUGS (21)
  1. ACETAMINOPHEN. [Concomitant]
     Active Substance: ACETAMINOPHEN
     Indication: PREMEDICATION
     Route: 048
     Dates: start: 20100108, end: 20100122
  2. METHYLPREDNISOLONE. [Concomitant]
     Active Substance: METHYLPREDNISOLONE
     Indication: PREMEDICATION
     Route: 042
     Dates: start: 20100108, end: 20100122
  3. OXYNEO [Concomitant]
     Active Substance: OXYCODONE
     Route: 065
  4. ACTEMRA [Suspect]
     Active Substance: TOCILIZUMAB
     Route: 042
     Dates: start: 20150527, end: 2017
  5. RITUXAN [Suspect]
     Active Substance: RITUXIMAB
     Dosage: SECOND INFUSION INTERRUPTED AND RESTARTED AT 12.25 ML, THEN 25 ML AND APPROX. 75 ML WAS ABSORBED.
     Route: 042
  6. PERCOCET [Concomitant]
     Active Substance: ACETAMINOPHEN\OXYCODONE HYDROCHLORIDE
     Dosage: 5-325 MG
     Route: 065
  7. HYDROXYCHLOROQUINE SULFATE. [Concomitant]
     Active Substance: HYDROXYCHLOROQUINE SULFATE
     Route: 048
  8. ACTEMRA [Suspect]
     Active Substance: TOCILIZUMAB
     Route: 042
     Dates: start: 20180323, end: 201806
  9. XELJANZ [Suspect]
     Active Substance: TOFACITINIB CITRATE
     Indication: PRODUCT USED FOR UNKNOWN INDICATION
     Route: 065
  10. SULFASALAZINE. [Concomitant]
     Active Substance: SULFASALAZINE
     Route: 048
  11. DIPHENHYDRAMINE HCL [Concomitant]
     Active Substance: DIPHENHYDRAMINE HYDROCHLORIDE
     Indication: PREMEDICATION
     Route: 048
     Dates: start: 20100108, end: 20100122
  12. PLAQUENIL [Concomitant]
     Active Substance: HYDROXYCHLOROQUINE SULFATE
  13. FOLIC ACID. [Concomitant]
     Active Substance: FOLIC ACID
  14. OXAZEPAM. [Concomitant]
     Active Substance: OXAZEPAM
     Route: 048
  15. RITUXAN [Suspect]
     Active Substance: RITUXIMAB
     Indication: RHEUMATOID ARTHRITIS
     Route: 042
     Dates: start: 20100108, end: 20100122
  16. ACTEMRA [Suspect]
     Active Substance: TOCILIZUMAB
     Indication: RHEUMATOID ARTHRITIS
     Route: 042
     Dates: start: 20130521
  17. METHOTREXATE. [Concomitant]
     Active Substance: METHOTREXATE
     Route: 058
  18. ACTEMRA [Suspect]
     Active Substance: TOCILIZUMAB
     Route: 042
     Dates: start: 20130618
  19. SIMPONI [Suspect]
     Active Substance: GOLIMUMAB
     Indication: RHEUMATOID ARTHRITIS
     Route: 065
     Dates: start: 201710, end: 201803
  20. PREDNISONE. [Concomitant]
     Active Substance: PREDNISONE
  21. NORMAL SALINE [Concomitant]
     Active Substance: SODIUM CHLORIDE
     Dosage: TO KEEP IV LINE OPEN?ALSO RECEIVED FOR ANAPHYLACTIC REACTION
     Route: 042
     Dates: start: 20100122, end: 20100122

REACTIONS (39)
  - Fall [Unknown]
  - Joint swelling [Unknown]
  - Drug hypersensitivity [Unknown]
  - Infection [Unknown]
  - Pain [Unknown]
  - Body temperature decreased [Unknown]
  - Hypotension [Unknown]
  - Ill-defined disorder [Unknown]
  - Weight abnormal [Unknown]
  - Impaired healing [Recovering/Resolving]
  - Vomiting [Recovering/Resolving]
  - Localised infection [Not Recovered/Not Resolved]
  - Wound infection [Recovering/Resolving]
  - Foot fracture [Not Recovered/Not Resolved]
  - Procedural haemorrhage [Unknown]
  - Anaphylactic reaction [Recovered/Resolved]
  - Arthralgia [Not Recovered/Not Resolved]
  - Cellulitis [Not Recovered/Not Resolved]
  - Heart rate increased [Unknown]
  - Weight decreased [Recovering/Resolving]
  - Drug ineffective [Unknown]
  - Rheumatoid arthritis [Unknown]
  - Swelling [Unknown]
  - Vascular rupture [Unknown]
  - Nausea [Unknown]
  - C-reactive protein increased [Unknown]
  - Bone disorder [Not Recovered/Not Resolved]
  - Headache [Recovered/Resolved]
  - Vomiting [Unknown]
  - Weight increased [Not Recovered/Not Resolved]
  - Body temperature decreased [Unknown]
  - Inflammation [Not Recovered/Not Resolved]
  - Poor quality sleep [Unknown]
  - Unevaluable event [Unknown]
  - Upper limb fracture [Unknown]
  - Ligament sprain [Unknown]
  - Nausea [Recovering/Resolving]
  - Anxiety [Not Recovered/Not Resolved]
  - Agitation [Unknown]

NARRATIVE: CASE EVENT DATE: 20100122
